FAERS Safety Report 24884100 (Version 1)
Quarter: 2025Q1

REPORT INFORMATION
  Report Type: Spontaneous
  Country: FI (occurrence: FI)
  Receive Date: 20250124
  Receipt Date: 20250124
  Transmission Date: 20250409
  Serious: Yes (Other)
  Sender: JOHNSON AND JOHNSON
  Company Number: FI-JNJFOC-20250168408

PATIENT
  Sex: Female

DRUGS (1)
  1. HALOPERIDOL DECANOATE [Suspect]
     Active Substance: HALOPERIDOL DECANOATE
     Indication: Product used for unknown indication
     Route: 065

REACTIONS (37)
  - Epilepsy [Unknown]
  - Arrhythmia [Unknown]
  - Torticollis [Unknown]
  - Rhabdomyolysis [Unknown]
  - Dyspnoea [Unknown]
  - Ear haemorrhage [Unknown]
  - Fluid retention [Unknown]
  - Loss of libido [Unknown]
  - Musculoskeletal stiffness [Unknown]
  - Joint stiffness [Unknown]
  - Muscle spasms [Unknown]
  - Muscle twitching [Unknown]
  - Muscle contractions involuntary [Unknown]
  - Gait disturbance [Unknown]
  - Photosensitivity reaction [Unknown]
  - Amenorrhoea [Unknown]
  - Breast pain [Unknown]
  - Oedema [Unknown]
  - Obstructive airways disorder [Unknown]
  - Trismus [Unknown]
  - Blood glucose decreased [Unknown]
  - Speech disorder [Unknown]
  - Biliary tract disorder [Unknown]
  - Amnesia [Unknown]
  - Agraphia [Unknown]
  - Disorientation [Unknown]
  - Vision blurred [Unknown]
  - Headache [Unknown]
  - Dizziness [Unknown]
  - Muscular weakness [Unknown]
  - Psychomotor hyperactivity [Unknown]
  - Dyskinesia [Unknown]
  - Somnolence [Unknown]
  - Restlessness [Unknown]
  - Dysphagia [Unknown]
  - Muscular weakness [Unknown]
  - Reduced facial expression [Unknown]
